FAERS Safety Report 9716631 (Version 1)
Quarter: 2013Q4

REPORT INFORMATION
  Report Type: Spontaneous
  Country: US (occurrence: None)
  Receive Date: 20131126
  Receipt Date: 20131126
  Transmission Date: 20140711
  Serious: Yes (Hospitalization)
  Sender: FDA-Public Use
  Company Number: None

PATIENT
  Sex: Female
  Weight: 75.7 kg

DRUGS (2)
  1. FERRIPROX [Suspect]
     Indication: HAEMOGLOBIN E-THALASSAEMIA DISEASE
     Route: 048
     Dates: start: 20130428, end: 20131008
  2. FERRIPROX [Suspect]
     Indication: HAEMOCHROMATOSIS
     Route: 048
     Dates: start: 20130428, end: 20131008

REACTIONS (2)
  - Neutrophil count decreased [None]
  - Sepsis [None]
